FAERS Safety Report 9501517 (Version 1)
Quarter: 2013Q1

REPORT INFORMATION
  Report Type: Spontaneous
  Country: US (occurrence: None)
  Receive Date: 20130107
  Receipt Date: 20130107
  Transmission Date: 20140127
  Serious: Yes (Other)
  Sender: FDA-Public Use
  Company Number: PHEH2012US021253

PATIENT
  Age: 31 Year
  Sex: Female

DRUGS (4)
  1. GILENYA [Suspect]
     Indication: MULTIPLE SCLEROSIS
     Route: 048
     Dates: start: 20121026, end: 20121026
  2. KLONOPIN (CLONAZEPAM) [Concomitant]
  3. CYMBALTA (DULOXETINE HYDROCHLORIDE) [Concomitant]
  4. LAMICTAL (LAMOTRIGINE) [Concomitant]

REACTIONS (4)
  - Dyspnoea [None]
  - Blood pressure increased [None]
  - Heart rate decreased [None]
  - Dizziness [None]
